FAERS Safety Report 4467802-7 (Version None)
Quarter: 2004Q4

REPORT INFORMATION
  Report Type: 
  Country: None (occurrence: None)
  Receive Date: 20041001
  Receipt Date: 20040924
  Transmission Date: 20050328
  Serious: No
  Sender: FDA-Public Use
  Company Number: 2004UW20187

PATIENT
  Age: 45 Year
  Sex: Male

DRUGS (5)
  1. SEROQUEL [Suspect]
  2. SINEMET [Suspect]
  3. TIMENTIN [Concomitant]
  4. TYLENOL [Concomitant]
  5. NITROFURANTOIN [Concomitant]

REACTIONS (6)
  - BLOOD CREATINE PHOSPHOKINASE INCREASED [None]
  - DRUG WITHDRAWAL SYNDROME [None]
  - DYSPHAGIA [None]
  - MUSCLE RIGIDITY [None]
  - NEUROLEPTIC MALIGNANT SYNDROME [None]
  - PYREXIA [None]
